FAERS Safety Report 8042743-7 (Version None)
Quarter: 2011Q4

REPORT INFORMATION
  Report Type: 
  Country: None (occurrence: None)
  Receive Date: 20111202
  Receipt Date: 20110824
  Transmission Date: 20120403
  Serious: Yes (Hospitalization)
  Sender: FDA-Public Use
  Company Number: 2008-188129-NL

PATIENT
  Age: 49 Year
  Sex: Female
  Weight: 81.6 kg

DRUGS (10)
  1. NUVARING [Suspect]
     Indication: DYSMENORRHOEA
     Dates: start: 20080529, end: 20080701
  2. NUVARING [Suspect]
     Indication: MENORRHAGIA
     Dates: start: 20080529, end: 20080701
  3. NUVARING [Suspect]
     Indication: DYSMENORRHOEA
     Dates: start: 20080801, end: 20080825
  4. NUVARING [Suspect]
     Indication: MENORRHAGIA
     Dates: start: 20080801, end: 20080825
  5. FERROUS SULFATE TAB [Concomitant]
  6. WELLBUTRIN [Concomitant]
  7. CALCIUM AND VITAMIN D [Concomitant]
  8. MULTI-VITAMINS [Concomitant]
  9. PROZAC [Concomitant]
  10. WELLBUTRIN [Concomitant]

REACTIONS (2)
  - PULMONARY EMBOLISM [None]
  - MUSCLE SPASMS [None]
